FAERS Safety Report 7587507-3 (Version None)
Quarter: 2011Q3

REPORT INFORMATION
  Report Type: 
  Country: None (occurrence: None)
  Receive Date: 20110704
  Receipt Date: 20110630
  Transmission Date: 20111222
  Serious: Yes (Other)
  Sender: FDA-Public Use
  Company Number: US-BRISTOL-MYERS SQUIBB COMPANY-15868169

PATIENT
  Age: 49 Year
  Sex: Male

DRUGS (3)
  1. ABILIFY [Suspect]
     Dosage: FOR 7 YEARS
     Dates: start: 20040101, end: 20110101
  2. SINGULAIR [Concomitant]
  3. ALLOPURINOL [Concomitant]

REACTIONS (1)
  - POLYCYTHAEMIA [None]
